FAERS Safety Report 5712950-4 (Version None)
Quarter: 2008Q2

REPORT INFORMATION
  Report Type: 
  Country: None (occurrence: None)
  Receive Date: 20080421
  Receipt Date: 20080421
  Transmission Date: 20081010
  Serious: Yes (Hospitalization)
  Sender: FDA-Public Use
  Company Number: None

PATIENT
  Age: 90 Year
  Sex: Male
  Weight: 61.69 kg

DRUGS (2)
  1. WARFARIN SODIUM [Suspect]
     Indication: ATRIAL FIBRILLATION
     Dosage: 32.5 MG QWEEK PO
     Route: 048
     Dates: start: 19980101, end: 20071024
  2. WARFARIN SODIUM [Suspect]
     Indication: PERIPHERAL VASCULAR DISORDER
     Dosage: 32.5 MG QWEEK PO
     Route: 048
     Dates: start: 19980101, end: 20071024

REACTIONS (11)
  - ACUTE CORONARY SYNDROME [None]
  - ANAEMIA [None]
  - CARDIAC FAILURE CONGESTIVE [None]
  - DIVERTICULUM [None]
  - GASTRIC DISORDER [None]
  - GASTRIC HAEMORRHAGE [None]
  - GASTROINTESTINAL ANGIODYSPLASIA [None]
  - HAEMORRHOIDAL HAEMORRHAGE [None]
  - INTESTINAL POLYP [None]
  - OESOPHAGEAL DISORDER [None]
  - REFLUX OESOPHAGITIS [None]
